FAERS Safety Report 22086905 (Version 1)
Quarter: 2023Q1

REPORT INFORMATION
  Report Type: Report from Study
  Country: US (occurrence: US)
  Receive Date: 20230312
  Receipt Date: 20230312
  Transmission Date: 20230417
  Serious: Yes (Other)
  Sender: FDA-Public Use
  Company Number: US-ABBVIE-4336373

PATIENT
  Sex: Male

DRUGS (1)
  1. IMBRUVICA [Suspect]
     Active Substance: IBRUTINIB
     Indication: Chronic lymphocytic leukaemia
     Route: 048
     Dates: start: 20180410, end: 20230307

REACTIONS (4)
  - Chronic lymphocytic leukaemia [Recovering/Resolving]
  - Night sweats [Recovering/Resolving]
  - Weight decreased [Unknown]
  - Pyrexia [Recovering/Resolving]
